FAERS Safety Report 9342088 (Version 2)
Quarter: 2015Q3

REPORT INFORMATION
  Report Type: Spontaneous
  Country: US (occurrence: US)
  Receive Date: 20130611
  Receipt Date: 20150923
  Transmission Date: 20151125
  Serious: Yes (Other)
  Sender: FDA-Public Use
  Company Number: US-PFIZER INC-2013173136

PATIENT
  Sex: Male
  Weight: 75.74 kg

DRUGS (1)
  1. VIAGRA [Suspect]
     Active Substance: SILDENAFIL CITRATE
     Indication: SEXUALLY ACTIVE
     Dosage: 100 MG, UNK (AT 6PM AND 9 OR 10 PM)

REACTIONS (1)
  - Amyotrophic lateral sclerosis [Unknown]
